FAERS Safety Report 8449629 (Version 4)
Quarter: 2014Q3

REPORT INFORMATION
  Report Type: Spontaneous
  Country: TR (occurrence: TR)
  Receive Date: 20120309
  Receipt Date: 20140730
  Transmission Date: 20150326
  Serious: Yes (Other)
  Sender: FDA-Public Use
  Company Number: TR-RANBAXY-2012RR-53424

PATIENT
  Age: 30 Year
  Sex: Male

DRUGS (2)
  1. ETODOLAC. [Suspect]
     Active Substance: ETODOLAC
     Indication: ALLERGY TEST
     Dosage: 750 MG, UNK
     Route: 048
  2. ETODOLAC. [Suspect]
     Active Substance: ETODOLAC
     Indication: PRODUCT USED FOR UNKNOWN INDICATION
     Dosage: UNK
     Route: 065

REACTIONS (1)
  - Drug eruption [Recovered/Resolved]
